FAERS Safety Report 5242236-6 (Version None)
Quarter: 2007Q1

REPORT INFORMATION
  Report Type: 
  Country: None (occurrence: None)
  Receive Date: 20070215
  Receipt Date: 20070215
  Transmission Date: 20070707
  Serious: Yes (Life-Threatening, Hospitalization)
  Sender: FDA-Public Use
  Company Number: None

PATIENT
  Sex: Male

DRUGS (1)
  1. CEFTRIAXONE [Suspect]
     Indication: INFECTION
     Dosage: SINGLE, 1 HOUR INFUSION

REACTIONS (6)
  - BLISTER [None]
  - DRUG HYPERSENSITIVITY [None]
  - HYPOTENSION [None]
  - INFUSION RELATED REACTION [None]
  - OXYGEN SATURATION DECREASED [None]
  - RASH ERYTHEMATOUS [None]
